FAERS Safety Report 14939667 (Version 3)
Quarter: 2018Q2

REPORT INFORMATION
  Report Type: Spontaneous
  Country: TW (occurrence: TW)
  Receive Date: 20180525
  Receipt Date: 20180613
  Transmission Date: 20180711
  Serious: Yes (Hospitalization)
  Sender: FDA-Public Use
  Company Number: TW-ABBVIE-18P-153-2365026-00

PATIENT
  Age: 55 Year
  Sex: Female
  Weight: 64.8 kg

DRUGS (4)
  1. EXVIERA [Suspect]
     Active Substance: DASABUVIR
     Indication: CHRONIC HEPATITIS C
     Route: 048
     Dates: start: 20180125, end: 20180419
  2. VIEKIRAX [Suspect]
     Active Substance: OMBITASVIR\PARITAPREVIR\RITONAVIR
     Indication: CHRONIC HEPATITIS C
     Dosage: 12.5/75/50 MG
     Route: 048
     Dates: start: 20180125, end: 20180419
  3. LINAGLIPTIN [Concomitant]
     Active Substance: LINAGLIPTIN
     Indication: DIABETES MELLITUS
  4. AMARYL [Concomitant]
     Active Substance: GLIMEPIRIDE
     Indication: DIABETES MELLITUS

REACTIONS (7)
  - Acute pulmonary oedema [Recovering/Resolving]
  - Gastrointestinal haemorrhage [Unknown]
  - Lung infiltration [Unknown]
  - Pneumonia [Unknown]
  - Pulmonary oedema [Recovering/Resolving]
  - Anaemia [Unknown]
  - Cardiac failure congestive [Unknown]

NARRATIVE: CASE EVENT DATE: 20180521
